FAERS Safety Report 17098831 (Version 1)
Quarter: 2019Q4

REPORT INFORMATION
  Report Type: Spontaneous
  Country: US (occurrence: US)
  Receive Date: 20191129
  Receipt Date: 20191129
  Transmission Date: 20200122
  Serious: Yes (Hospitalization)
  Sender: FDA-Public Use
  Company Number: None

PATIENT
  Age: 1 Year
  Sex: Male
  Weight: 9.9 kg

DRUGS (1)
  1. DAYTIME TINY COLD TABLETS (BABY HOMEOPATHICS) [Suspect]
     Active Substance: HOMEOPATHICS
     Indication: RHINORRHOEA
     Dosage: ?          QUANTITY:3 TABLET(S);?
     Route: 048
     Dates: start: 20191129, end: 20191129

REACTIONS (3)
  - Lung disorder [None]
  - Dyspnoea [None]
  - Wheezing [None]

NARRATIVE: CASE EVENT DATE: 20191129
